FAERS Safety Report 24941207 (Version 1)
Quarter: 2025Q1

REPORT INFORMATION
  Report Type: Spontaneous
  Country: GB (occurrence: GB)
  Receive Date: 20250207
  Receipt Date: 20250207
  Transmission Date: 20250409
  Serious: Yes (Other)
  Sender: RANBAXY
  Company Number: GB-MHRA-TPP773505C21293775YC1737536011634

PATIENT
  Age: 62 Year
  Sex: Male
  Weight: 110 kg

DRUGS (12)
  1. ROSUVASTATIN [Suspect]
     Active Substance: ROSUVASTATIN
     Indication: Product used for unknown indication
     Dosage: 1 EVERY DAY - AIM TO INCREASE TO 10MG IF CAN TO...
     Route: 065
     Dates: start: 20241231
  2. FLUTICASONE FUROATE\VILANTEROL TRIFENATATE [Concomitant]
     Active Substance: FLUTICASONE FUROATE\VILANTEROL TRIFENATATE
     Indication: Product used for unknown indication
     Dosage: INHALE ONE DOSE DAILY
     Route: 055
     Dates: start: 20240110
  3. VENTOLIN [Concomitant]
     Active Substance: ALBUTEROL SULFATE
     Indication: Product used for unknown indication
     Route: 055
     Dates: start: 20240110
  4. CODEINE PHOSPHATE [Concomitant]
     Active Substance: CODEINE PHOSPHATE
     Indication: Product used for unknown indication
     Route: 065
     Dates: start: 20240823
  5. CONTOUR NEXT [Concomitant]
     Indication: Product used for unknown indication
     Route: 065
     Dates: start: 20240823
  6. GLUCAGON [Concomitant]
     Active Substance: GLUCAGON
     Indication: Product used for unknown indication
     Route: 065
     Dates: start: 20240823
  7. LEVEMIR [Concomitant]
     Active Substance: INSULIN DETEMIR
     Indication: Product used for unknown indication
     Route: 065
     Dates: start: 20240823
  8. LOPERAMIDE [Concomitant]
     Active Substance: LOPERAMIDE
     Indication: Product used for unknown indication
     Route: 065
     Dates: start: 20240823
  9. MYLIFE [Concomitant]
     Indication: Product used for unknown indication
     Route: 065
     Dates: start: 20240823
  10. NOVORAPID [Concomitant]
     Active Substance: INSULIN ASPART
     Indication: Product used for unknown indication
     Route: 065
     Dates: start: 20240823
  11. ZEROBASE [Concomitant]
     Indication: Product used for unknown indication
     Route: 065
     Dates: start: 20240823
  12. ATORVASTATIN [Concomitant]
     Active Substance: ATORVASTATIN
     Indication: Product used for unknown indication
     Dosage: TAKE ONE TABLET EVERY EVENING
     Route: 065
     Dates: start: 20241217, end: 20241227

REACTIONS (1)
  - Blood glucose increased [Recovered/Resolved]
